FAERS Safety Report 8192838-2 (Version None)
Quarter: 2012Q1

REPORT INFORMATION
  Report Type: 
  Country: None (occurrence: None)
  Receive Date: 20120308
  Receipt Date: 20120305
  Transmission Date: 20120608
  Serious: No
  Sender: FDA-Public Use
  Company Number: US-PFIZER INC-2012059064

PATIENT
  Sex: Female
  Weight: 88.435 kg

DRUGS (4)
  1. SYNTHROID [Concomitant]
     Dosage: UNK
  2. TOVIAZ [Suspect]
     Dosage: 8 MG, 1X/DAY
     Route: 048
  3. PREMARIN [Concomitant]
     Dosage: UNK
  4. TOVIAZ [Suspect]
     Indication: BLADDER SPASM
     Dosage: 4 MG, 1X/DAY
     Route: 048

REACTIONS (2)
  - VITAMIN D DECREASED [None]
  - DRUG INEFFECTIVE [None]
